FAERS Safety Report 23821860 (Version 1)
Quarter: 2024Q2

REPORT INFORMATION
  Report Type: Spontaneous
  Country: CA (occurrence: CA)
  Receive Date: 20240506
  Receipt Date: 20240506
  Transmission Date: 20240716
  Serious: Yes (Other)
  Sender: FDA-Public Use
  Company Number: CA-TEVA-VS-3194033

PATIENT
  Age: 23 Year
  Sex: Female

DRUGS (2)
  1. AJOVY [Suspect]
     Active Substance: FREMANEZUMAB-VFRM
     Indication: Prophylaxis
     Dosage: DOSAGE FORM: SOLUTION SUBCUTANEOUS.?SINGLE-DOSE PREFILLED AUTOINJECTOR
     Route: 058
  2. ANTIPRURITICS (ANTIHISTAMINES, ANESTHETICS, ETC) [Concomitant]
     Indication: Product used for unknown indication
     Route: 065

REACTIONS (3)
  - Erythema [Recovering/Resolving]
  - Injection site reaction [Recovering/Resolving]
  - Pruritus [Recovering/Resolving]
